FAERS Safety Report 9125125 (Version 1)
Quarter: 2013Q1

REPORT INFORMATION
  Report Type: Spontaneous
  Country: US (occurrence: US)
  Receive Date: 20130117
  Receipt Date: 20130117
  Transmission Date: 20140127
  Serious: Yes (Other)
  Sender: FDA-Public Use
  Company Number: US-PFIZER INC-2013020712

PATIENT
  Sex: Male

DRUGS (4)
  1. LYRICA [Suspect]
     Indication: ADJUVANT THERAPY
     Dosage: 150 MG, 3X/DAY
     Route: 048
     Dates: end: 2012
  2. LORTAB [Concomitant]
     Indication: NEUROPATHY PERIPHERAL
     Dosage: UNK
  3. KLONOPIN [Concomitant]
     Indication: NEUROPATHY PERIPHERAL
     Dosage: UNK
  4. TRAMADOL [Concomitant]
     Indication: BACK DISORDER
     Dosage: UNK

REACTIONS (1)
  - Convulsion [Recovered/Resolved]
